FAERS Safety Report 5140219-8 (Version None)
Quarter: 2006Q4

REPORT INFORMATION
  Report Type: 
  Country: None (occurrence: None)
  Receive Date: 20061031
  Receipt Date: 20061005
  Transmission Date: 20070319
  Serious: Yes (Other)
  Sender: FDA-Public Use
  Company Number: AU-GLAXOSMITHKLINE-B0441043A

PATIENT
  Age: 11 Year
  Sex: Female

DRUGS (1)
  1. CHILDREN'S PANADOL ELIXIR 5-12 YEARS [Suspect]
     Route: 048
     Dates: start: 20061003, end: 20061003

REACTIONS (2)
  - SWELLING [None]
  - URTICARIA [None]
